FAERS Safety Report 20773499 (Version 1)
Quarter: 2022Q2

REPORT INFORMATION
  Report Type: Spontaneous
  Country: US (occurrence: None)
  Receive Date: 20220502
  Receipt Date: 20220502
  Transmission Date: 20220721
  Serious: Yes (Hospitalization)
  Sender: FDA-Public Use
  Company Number: None

PATIENT
  Sex: Female

DRUGS (2)
  1. HUMIRA [Suspect]
     Active Substance: ADALIMUMAB
     Indication: Crohn^s disease
     Dosage: OTHER QUANTITY : 40MG/0.4ML;?FREQUENCY : AS DIRECTED;?
     Route: 058
     Dates: start: 20210519
  2. HUMIRA [Suspect]
     Active Substance: ADALIMUMAB
     Dosage: FREQUENCY : AS DIRECTED;?
     Route: 058

REACTIONS (1)
  - Chronic kidney disease [None]
